FAERS Safety Report 16110430 (Version 1)
Quarter: 2019Q1

REPORT INFORMATION
  Report Type: Spontaneous
  Country: FR (occurrence: FR)
  Receive Date: 20190325
  Receipt Date: 20190325
  Transmission Date: 20190418
  Serious: Yes (Hospitalization)
  Sender: FDA-Public Use
  Company Number: FR-ACCORD-115330

PATIENT
  Age: 70 Year
  Sex: Female

DRUGS (2)
  1. OXALIPLATIN. [Suspect]
     Active Substance: OXALIPLATIN
     Indication: NEOPLASM MALIGNANT
     Route: 042
     Dates: start: 2018, end: 20180926
  2. VECTIBIX [Suspect]
     Active Substance: PANITUMUMAB
     Indication: NEOPLASM MALIGNANT
     Dosage: STRENGTH: 20 MG / ML, CONCENTRATE FOR SOLUTION FOR INFUSION
     Route: 042
     Dates: start: 2018, end: 20180926

REACTIONS (4)
  - Anaemia [Not Recovered/Not Resolved]
  - Nephropathy [Not Recovered/Not Resolved]
  - Thrombocytopenia [Not Recovered/Not Resolved]
  - Hyperthermia [Not Recovered/Not Resolved]

NARRATIVE: CASE EVENT DATE: 201810
